FAERS Safety Report 6083711-4 (Version None)
Quarter: 2009Q1

REPORT INFORMATION
  Report Type: 
  Country: None (occurrence: None)
  Receive Date: 20090217
  Receipt Date: 20090217
  Transmission Date: 20090719
  Serious: No
  Sender: FDA-Public Use
  Company Number: None

PATIENT
  Age: 22 Month
  Sex: Female

DRUGS (1)
  1. PROGLYCEM [Suspect]
     Indication: HYPERGLYCAEMIA
     Dosage: 1.7 ML ORALLY Q8 HRS OVER LAST 3 MONTHS
     Route: 048

REACTIONS (1)
  - BLOOD PRESSURE DECREASED [None]
